FAERS Safety Report 23561505 (Version 1)
Quarter: 2024Q1

REPORT INFORMATION
  Report Type: Spontaneous
  Country: US (occurrence: US)
  Receive Date: 20240225
  Receipt Date: 20240225
  Transmission Date: 20240409
  Serious: Yes (Hospitalization)
  Sender: FDA-Public Use
  Company Number: US-LUPIN PHARMACEUTICALS INC.-2024-01392

PATIENT
  Age: 10 Year
  Sex: Male

DRUGS (2)
  1. QUETIAPINE FUMARATE [Suspect]
     Active Substance: QUETIAPINE FUMARATE
     Indication: Agitation
     Dosage: UNK UNK, PRN (AS NEEDED)
     Route: 065
  2. HALOPERIDOL [Suspect]
     Active Substance: HALOPERIDOL
     Indication: Agitation
     Dosage: UNK UNK, PRN (AS NEEDED)
     Route: 065

REACTIONS (4)
  - Restless legs syndrome [Unknown]
  - Dyskinesia [Unknown]
  - Tremor [Unknown]
  - Condition aggravated [Unknown]
